FAERS Safety Report 12305830 (Version 1)
Quarter: 2016Q2

REPORT INFORMATION
  Report Type: Spontaneous
  Country: US (occurrence: US)
  Receive Date: 20160426
  Receipt Date: 20160426
  Transmission Date: 20160815
  Serious: Yes (Other)
  Sender: FDA-Public Use
  Company Number: US-PFIZER INC-2016224918

PATIENT
  Age: 52 Year
  Sex: Female

DRUGS (2)
  1. IBRANCE [Concomitant]
     Active Substance: PALBOCICLIB
     Indication: BREAST CANCER METASTATIC
     Dosage: 125 MG, 1X/DAY (EVERY EVENING WITH MEALS), CYCLIC
  2. AROMASIN [Suspect]
     Active Substance: EXEMESTANE
     Indication: NEOPLASM MALIGNANT
     Dosage: 25 MG, 1X/DAY ((AT DINNER)

REACTIONS (27)
  - Hypoaesthesia [Unknown]
  - Muscular weakness [Unknown]
  - Hyperhidrosis [Unknown]
  - Anxiety [Unknown]
  - Insomnia [Unknown]
  - Nausea [Unknown]
  - Cerebrovascular accident [Unknown]
  - Dyspnoea [Unknown]
  - Migraine [Unknown]
  - Alopecia [Unknown]
  - Bone pain [Unknown]
  - Somnolence [Unknown]
  - Confusional state [Unknown]
  - Fatigue [Unknown]
  - Myocardial infarction [Unknown]
  - Depression [Unknown]
  - Myalgia [Unknown]
  - Abdominal discomfort [Unknown]
  - Dizziness [Unknown]
  - Diarrhoea [Unknown]
  - Thrombosis [Unknown]
  - Visual impairment [Unknown]
  - Chest pain [Unknown]
  - Hot flush [Unknown]
  - Arthralgia [Unknown]
  - Oedema peripheral [Unknown]
  - Balance disorder [Unknown]
